FAERS Safety Report 7174260-0 (Version None)
Quarter: 2010Q4

REPORT INFORMATION
  Report Type: 
  Country: None (occurrence: None)
  Receive Date: 20101219
  Receipt Date: 20100323
  Transmission Date: 20110411
  Serious: No
  Sender: FDA-Public Use
  Company Number: US-AMGEN-KDL401462

PATIENT

DRUGS (2)
  1. ENBREL [Suspect]
     Indication: BEHCET'S SYNDROME
     Dosage: 50 MG, QWK
     Route: 058
     Dates: start: 20010101
  2. ENBREL [Suspect]
     Indication: PRODUCT USED FOR UNKNOWN INDICATION

REACTIONS (3)
  - BACTERIAL INFECTION [None]
  - MUSCLE SPASMS [None]
  - PAIN [None]
